FAERS Safety Report 8522411 (Version 2)
Quarter: 2013Q2

REPORT INFORMATION
  Report Type: Spontaneous
  Country: US (occurrence: US)
  Receive Date: 20120419
  Receipt Date: 20130409
  Transmission Date: 20140414
  Serious: No
  Sender: FDA-Public Use
  Company Number: US-PFIZER INC-2012093609

PATIENT
  Age: 67 Year
  Sex: Female

DRUGS (30)
  1. LIPITOR [Suspect]
     Dosage: UNK
     Dates: end: 20070804
  2. LYRICA [Suspect]
     Dosage: 150 MG, 1X/DAY (1 NIGHT)
     Route: 048
  3. PRAVACHOL [Suspect]
     Dosage: UNK
     Dates: end: 20070804
  4. ZOCOR [Suspect]
     Dosage: UNK
     Dates: end: 20070804
  5. TRICOR [Suspect]
     Dosage: UNK
     Dates: end: 20070804
  6. CRESTOR [Suspect]
     Dosage: UNK
     Dates: end: 20070804
  7. PAXIL [Suspect]
     Dosage: UNK
     Dates: end: 20071207
  8. SAVELLA [Concomitant]
     Dosage: UNK
  9. CIPROFLOXACIN [Concomitant]
     Dosage: UNK
  10. SOTALOL HYDROCHLORIDE [Concomitant]
     Dosage: 80 MG, ONE IN MORNING AND AT NIGHT
     Dates: start: 20091116
  11. CYMBALTA [Concomitant]
     Dosage: 60 MG, 1 IN MORNING AND AT NIGHT
     Dates: start: 20071217, end: 20130311
  12. ACETYLSALICYLIC ACID [Concomitant]
     Dosage: 81 MG, 1 AT NIGHT
  13. COZAAR [Concomitant]
     Dosage: 50 MG,1 IN THE MORNING
  14. ZETIA [Concomitant]
     Dosage: 10 MG, 1 IN THE MORNING
  15. JANUVIA [Concomitant]
     Dosage: 100 MG, 1 IN THE MORNING
  16. LANTUS [Concomitant]
     Dosage: 10 UNITS, AT BEDTIME
  17. GLYBURIDE [Concomitant]
     Dosage: 5 MG (2 OF 2.5 MG), IN MORNING AND AT NIGHT
     Dates: end: 2012
  18. METFORMIN [Concomitant]
     Dosage: 1000 MG (2 OF 500 MG), IN MORNING AND AT NIGHT
  19. MINOCYCLINE HYDROCHLORIDE [Concomitant]
     Dosage: 100 MG, 1 AT BEDTIME
  20. CALCIUM [Concomitant]
     Dosage: 600 MG,1 AT NIGHT
  21. MULTIVITAMINS [Concomitant]
     Dosage: 1 DF, ONE IN THE MORNING
  22. OMEGA 3 [Concomitant]
     Dosage: 1400 MG,1 IN MORNING AND AT NIGHT
  23. VITAMIN C [Concomitant]
     Dosage: 500 MG, 1 AT NIGHT
  24. VITAMIN B12 [Concomitant]
     Dosage: 2500 MG, 1 AT NIGHT
  25. FISH OIL [Concomitant]
     Dosage: 1400 MG, 1 IN MORNING AND AT NIGHT
  26. EFEXOR XR [Concomitant]
     Dosage: 75 MG, 1 IN THE MORNING
  27. ASPIRIN [Concomitant]
     Dosage: 81 MG, 1 AT NIGHT
  28. LANTUS SOLOSTAR [Concomitant]
     Dosage: 40 UNIT IN MORNING 18 UNIT AT NIGHT
  29. HUMALOG [Concomitant]
     Dosage: 15-25 UNITS ACCORDING TO BLOOD SUGAR READINGS
  30. ACTOS [Concomitant]
     Dosage: UNK
     Dates: end: 2011

REACTIONS (3)
  - Muscular weakness [Unknown]
  - Musculoskeletal stiffness [Unknown]
  - Myalgia [Unknown]
